FAERS Safety Report 5202159-5 (Version None)
Quarter: 2007Q1

REPORT INFORMATION
  Report Type: 
  Country: None (occurrence: None)
  Receive Date: 20070109
  Receipt Date: 20070102
  Transmission Date: 20070707
  Serious: Yes (Other)
  Sender: FDA-Public Use
  Company Number: GB-ROCHE-472992

PATIENT
  Age: 62 Year
  Sex: Female
  Weight: 84.6 kg

DRUGS (4)
  1. XENICAL [Suspect]
     Indication: OBESITY
     Route: 048
     Dates: start: 20061027
  2. AMLODIPINE [Concomitant]
     Route: 048
  3. VENLAFAXINE HCL [Concomitant]
     Indication: DEPRESSION
     Dosage: SECOND INDICATION: STRESS.
     Route: 048
  4. CEPHALEXIN [Concomitant]
     Route: 048

REACTIONS (2)
  - RETINAL HAEMORRHAGE [None]
  - RETINAL VEIN OCCLUSION [None]
